FAERS Safety Report 20162366 (Version 3)
Quarter: 2023Q1

REPORT INFORMATION
  Report Type: Spontaneous
  Country: IN (occurrence: IN)
  Receive Date: 20211208
  Receipt Date: 20230327
  Transmission Date: 20230418
  Serious: Yes (Other)
  Sender: FDA-Public Use
  Company Number: IN-ALLERGAN-2141277US

PATIENT
  Sex: Female

DRUGS (1)
  1. BRIMONIDINE [Suspect]
     Active Substance: BRIMONIDINE TARTRATE
     Indication: Exfoliation glaucoma
     Dosage: UNK UNK, BID
     Route: 047
     Dates: start: 2019

REACTIONS (6)
  - Choroidal haemorrhage [Unknown]
  - Injury corneal [Unknown]
  - Uveal prolapse [Unknown]
  - Dermatitis [Unknown]
  - Drug hypersensitivity [Unknown]
  - Eye discharge [Unknown]
